FAERS Safety Report 6033034-4 (Version None)
Quarter: 2008Q4

REPORT INFORMATION
  Report Type: 
  Country: None (occurrence: None)
  Receive Date: 20081224
  Receipt Date: 20081103
  Transmission Date: 20090506
  Serious: No
  Sender: FDA-Public Use
  Company Number: 2008PV037034

PATIENT
  Age: 71 Year
  Sex: Male

DRUGS (5)
  1. SYMLIN [Suspect]
     Indication: TYPE 2 DIABETES MELLITUS
     Dosage: 60 MCG;TID;SC;120 MCG
     Route: 058
     Dates: start: 20080101, end: 20080101
  2. SYMLIN [Suspect]
     Indication: TYPE 2 DIABETES MELLITUS
     Dosage: 60 MCG;TID;SC;120 MCG
     Route: 058
     Dates: start: 20080101, end: 20081001
  3. SYMLIN [Suspect]
     Indication: TYPE 2 DIABETES MELLITUS
     Dosage: SC
     Route: 058
     Dates: start: 20050101, end: 20080101
  4. LANTUS [Concomitant]
  5. NOVOLOG [Concomitant]

REACTIONS (1)
  - BLOOD GLUCOSE INCREASED [None]
